FAERS Safety Report 5602324-9 (Version None)
Quarter: 2008Q1

REPORT INFORMATION
  Report Type: 
  Country: None (occurrence: None)
  Receive Date: 20080125
  Receipt Date: 20080115
  Transmission Date: 20080703
  Serious: Yes (Hospitalization, Other)
  Sender: FDA-Public Use
  Company Number: US-ASTRAZENECA-2006UW25301

PATIENT
  Age: 622 Month
  Sex: Female
  Weight: 68.2 kg

DRUGS (45)
  1. SEROQUEL [Suspect]
     Indication: BIPOLAR DISORDER
     Dosage: 200 MG, 400 MG
     Route: 048
     Dates: start: 20000101, end: 20070618
  2. SEROQUEL [Suspect]
     Indication: DEPRESSION
     Dosage: 200 MG, 400 MG
     Route: 048
     Dates: start: 20000101, end: 20070618
  3. SEROQUEL [Suspect]
     Indication: SLEEP DISORDER
     Dosage: 200 MG, 400 MG
     Route: 048
     Dates: start: 20000101, end: 20070618
  4. CLOZARIL [Concomitant]
     Dosage: 2006
  5. RISPERDAL [Concomitant]
     Dosage: 2006
  6. ZYPREXA/SYMBYAX (OLANZAPINE) [Concomitant]
     Dates: start: 20000101, end: 20010101
  7. METHADONE HCL [Concomitant]
     Dates: start: 20050101, end: 20060101
  8. ACETAMINOPHEN AND OXYCODONE HCL [Concomitant]
     Dates: start: 19990601
  9. SUMYCIN [Concomitant]
     Dates: start: 19990601
  10. CEPHALEXIN [Concomitant]
     Dates: start: 19990825
  11. DIGOXIN [Concomitant]
     Dates: start: 20000308
  12. TRICOR [Concomitant]
     Dates: start: 20000418
  13. AMBIEN [Concomitant]
     Dates: start: 20000418
  14. CLIMARA [Concomitant]
     Dates: start: 20000522
  15. DIAZEPAM [Concomitant]
     Dates: start: 20000810
  16. PERCOCET [Concomitant]
     Dates: start: 20000825
  17. HYDROCODONE/GUAIFENESIN [Concomitant]
     Dates: start: 20010419
  18. ALPRAZOLAM [Concomitant]
     Dates: start: 20011011
  19. LORAZEPAM [Concomitant]
     Dates: start: 20021115
  20. TRAMADOL HCL [Concomitant]
     Dates: start: 20021127
  21. NEURONTIN [Concomitant]
     Dates: start: 20021209
  22. ULTRACET [Concomitant]
     Dates: start: 20040325
  23. ACETAMINOPHEN W/ CODEINE [Concomitant]
     Dates: start: 20040524
  24. PENICILLIN VK [Concomitant]
     Dates: start: 20040831
  25. ACETAMINOPHEN AND HYDROCODONE BITARTRATE [Concomitant]
     Dates: start: 20040907
  26. PROPRANOLOL [Concomitant]
     Dates: start: 20040907
  27. PHENYTOIN [Concomitant]
     Dates: start: 20040907
  28. LEXAPRO [Concomitant]
     Dates: start: 20040927
  29. BEXTRA [Concomitant]
     Dates: start: 20040927
  30. DEPAKOTE [Concomitant]
     Dates: start: 20040927
  31. CYCLOBENZAPRINE HCL [Concomitant]
     Dates: start: 20041008
  32. AMITRIPTYLINE HCL [Concomitant]
     Dates: start: 20050519
  33. GABAPENTIN [Concomitant]
     Dates: start: 20050617
  34. CLONIDINE [Concomitant]
     Dates: start: 20050725
  35. ZOLOFT [Concomitant]
     Dates: start: 20050819
  36. DIOVAN HCT [Concomitant]
     Dates: start: 20050819
  37. VYTORIN [Concomitant]
     Dates: start: 20060209
  38. ATENOLOL [Concomitant]
     Dates: start: 20060602
  39. LIPITOR [Concomitant]
     Dates: start: 20060622
  40. NITROGLYN 2% OINTMENT [Concomitant]
  41. METOPROLOL TARTRATE [Concomitant]
  42. LISINOPRIL [Concomitant]
  43. PROTONIX [Concomitant]
  44. ZOCOR [Concomitant]
  45. OXYCODONE [Concomitant]

REACTIONS (11)
  - BACK PAIN [None]
  - BLOOD PRESSURE [None]
  - BLOOD TRIGLYCERIDES INCREASED [None]
  - CARDIAC DISORDER [None]
  - CHEST PAIN [None]
  - HYPERGLYCAEMIA [None]
  - HYPERPROLACTINAEMIA [None]
  - MUSCULOSKELETAL PAIN [None]
  - OEDEMA PERIPHERAL [None]
  - SUPRAVENTRICULAR TACHYCARDIA [None]
  - TACHYCARDIA [None]
